FAERS Safety Report 5317132-6 (Version None)
Quarter: 2007Q2

REPORT INFORMATION
  Report Type: 
  Country: None (occurrence: None)
  Receive Date: 20070504
  Receipt Date: 20070419
  Transmission Date: 20071010
  Serious: Yes (Other)
  Sender: FDA-Public Use
  Company Number: US-SHR-US-2007-009648

PATIENT
  Age: 57 Year
  Sex: Female
  Weight: 45.351 kg

DRUGS (5)
  1. BETASERON [Suspect]
     Indication: SECONDARY PROGRESSIVE MULTIPLE SCLEROSIS
     Dosage: 8 MIU, EVERY 2D
     Route: 058
     Dates: start: 20020616
  2. SYNTHROID [Concomitant]
     Dosage: 25 UNK, 1X/DAY
     Dates: start: 20050101
  3. FOSAMAX [Concomitant]
     Dosage: 70 UNK, 1X/WEEK
  4. LIPITOR [Concomitant]
     Dosage: 10 UNK, EVERY 2D
  5. TYLENOL [Concomitant]
     Dosage: 2 UNK, EVERY 2D

REACTIONS (1)
  - DIARRHOEA [None]
